FAERS Safety Report 11131821 (Version 1)
Quarter: 2015Q2

REPORT INFORMATION
  Report Type: Spontaneous
  Country: NL (occurrence: None)
  Receive Date: 20150520
  Receipt Date: 20150520
  Transmission Date: 20150821
  Serious: Yes (Other)
  Sender: FDA-Public Use
  Company Number: ADR-2015-00976

PATIENT
  Age: 24 Year
  Sex: Male

DRUGS (5)
  1. ALCOHOL. [Suspect]
     Active Substance: ALCOHOL
  2. BACLOFEN. [Suspect]
     Active Substance: BACLOFEN
     Indication: DRUG DEPENDENCE
  3. MIRTAZAPINE. [Suspect]
     Active Substance: MIRTAZAPINE
  4. MELATONIN [Suspect]
     Active Substance: MELATONIN
  5. AMPHETAMINE [Suspect]
     Active Substance: AMPHETAMINE

REACTIONS (7)
  - Tremor [None]
  - Depression [None]
  - Hyperhidrosis [None]
  - Drug abuse [None]
  - Off label use [None]
  - Dry mouth [None]
  - Mood swings [None]

NARRATIVE: CASE EVENT DATE: 20150223
